FAERS Safety Report 23895190 (Version 1)
Quarter: 2024Q2

REPORT INFORMATION
  Report Type: Spontaneous
  Country: US (occurrence: None)
  Receive Date: 20240523
  Receipt Date: 20240523
  Transmission Date: 20240717
  Serious: Yes (Hospitalization)
  Sender: FDA-Public Use
  Company Number: None

PATIENT
  Age: 69 Year
  Sex: Female

DRUGS (12)
  1. AMBRISENTAN [Suspect]
     Active Substance: AMBRISENTAN
     Indication: Pulmonary hypertension
     Dosage: FREQUENCY : DAILY;?
     Route: 048
     Dates: start: 20211228
  2. SILDENAFIL [Concomitant]
     Active Substance: SILDENAFIL
  3. FUROSEMIDE [Concomitant]
     Active Substance: FUROSEMIDE
  4. PANTOPRAZOLE [Concomitant]
     Active Substance: PANTOPRAZOLE
  5. METOPROLOL [Concomitant]
     Active Substance: METOPROLOL
  6. LEVETIRACETAM [Concomitant]
     Active Substance: LEVETIRACETAM
  7. PRADAXA [Concomitant]
     Active Substance: DABIGATRAN ETEXILATE MESYLATE
  8. VITAMIN D3 [Concomitant]
     Active Substance: CHOLECALCIFEROL
  9. GUAIFENESIN [Concomitant]
     Active Substance: GUAIFENESIN
  10. ACETYLCYSTEINE [Concomitant]
     Active Substance: ACETYLCYSTEINE
  11. BENZONATATE [Concomitant]
     Active Substance: BENZONATATE
  12. NASAL MOISTURIZING NASAL SPRAY [Concomitant]

REACTIONS (5)
  - Anaemia [None]
  - Gastrointestinal haemorrhage [None]
  - Shock haemorrhagic [None]
  - Acute respiratory failure [None]
  - Metapneumovirus infection [None]

NARRATIVE: CASE EVENT DATE: 20240509
